FAERS Safety Report 16989896 (Version 1)
Quarter: 2019Q4

REPORT INFORMATION
  Report Type: Spontaneous
  Country: US (occurrence: US)
  Receive Date: 20190920
  Receipt Date: 20190920
  Transmission Date: 20200122
  Serious: No
  Sender: FDA-Public Use
  Company Number: None

PATIENT
  Age: 48 Year
  Sex: Female

DRUGS (1)
  1. TETRABENAZIN TAB 25MG [Suspect]
     Active Substance: TETRABENAZINE
     Dosage: ?          OTHER DOSE:1.5 TABLETS;?
     Route: 048
     Dates: start: 2018, end: 201909

REACTIONS (2)
  - Therapy cessation [None]
  - Drug ineffective [None]

NARRATIVE: CASE EVENT DATE: 20190920
